FAERS Safety Report 9239567 (Version 1)
Quarter: 2013Q2

REPORT INFORMATION
  Report Type: Spontaneous
  Country: ES (occurrence: ES)
  Receive Date: 20130418
  Receipt Date: 20130418
  Transmission Date: 20140414
  Serious: Yes (Hospitalization, Other)
  Sender: FDA-Public Use
  Company Number: ES-VERTEX PHARMACEUTICALS INC.-2013-005144

PATIENT
  Age: 46 Year
  Sex: Male

DRUGS (10)
  1. INCIVO [Suspect]
     Indication: HEPATITIS C
     Dosage: 750 MG, TID
     Route: 048
     Dates: start: 201210, end: 20130213
  2. COPEGUS [Suspect]
     Indication: HEPATITIS C
     Dosage: DOSAGE FORM: TABLET
     Route: 048
     Dates: start: 201211
  3. COPEGUS [Suspect]
     Dosage: DOSAGE FORM: TABLET
     Route: 048
     Dates: start: 201210, end: 20130213
  4. PEGASYS [Suspect]
     Indication: HEPATITIS C
     Dosage: DOSAGE FORM: SOLUTION FOR INJECTION, ON THRUSDAY
     Route: 058
     Dates: start: 201210, end: 20130213
  5. PEGASYS [Suspect]
     Dosage: DOSAGE FORM: SOLUTION FOR INJECTION
     Route: 058
     Dates: start: 201211
  6. ATAZANAVIR [Suspect]
     Indication: HIV INFECTION
     Dosage: DOSAGE FORM: UNSPECIFIED
     Route: 048
     Dates: start: 201209, end: 20130213
  7. TRUVADA [Suspect]
     Indication: HIV INFECTION
     Dosage: DOSAGE FORM: TABLETS
     Route: 048
     Dates: start: 201209, end: 20130213
  8. METADONA [Concomitant]
     Dosage: DOSAGE FORM: UNSPECIFIED, 80 MG IN THE MORNING AND 30 MG AT NIGHT
     Route: 048
     Dates: start: 2011
  9. RITONAVIR [Concomitant]
     Indication: HIV INFECTION
     Dosage: DOSAGE FORM: UNSPECIFIED
     Route: 048
     Dates: start: 201209
  10. RETACRIT [Concomitant]
     Dosage: DOSAGE FORM: SOLUTION FOR INJECTION, ON MONDAY
     Route: 058
     Dates: start: 2012

REACTIONS (5)
  - Staphylococcal infection [Recovered/Resolved]
  - Pancytopenia [Recovered/Resolved]
  - Ecthyma [Recovered/Resolved]
  - Pyrexia [Recovered/Resolved]
  - Off label use [Unknown]
